FAERS Safety Report 10614595 (Version 1)
Quarter: 2014Q4

REPORT INFORMATION
  Report Type: Spontaneous
  Country: GB (occurrence: GB)
  Receive Date: 20141130
  Receipt Date: 20141130
  Transmission Date: 20150529
  Serious: Yes (Other)
  Sender: FDA-Public Use
  Company Number: PHHY2014GB152722

PATIENT
  Age: 22 Year
  Sex: Female
  Weight: 51 kg

DRUGS (2)
  1. ANADIN EXTRA [Concomitant]
     Active Substance: ACETAMINOPHEN\ASPIRIN\CAFFEINE
     Indication: PRODUCT USED FOR UNKNOWN INDICATION
     Route: 065
  2. PROPRANOLOL [Suspect]
     Active Substance: PROPRANOLOL\PROPRANOLOL HYDROCHLORIDE
     Indication: MIGRAINE
     Dosage: 40 MG, TID
     Route: 048

REACTIONS (1)
  - Aggression [Not Recovered/Not Resolved]
